FAERS Safety Report 14012411 (Version 1)
Quarter: 2017Q3

REPORT INFORMATION
  Report Type: Spontaneous
  Country: US (occurrence: US)
  Receive Date: 20170926
  Receipt Date: 20170926
  Transmission Date: 20171128
  Serious: No
  Sender: FDA-Public Use
  Company Number: US-BIOGEN-2017BV000184

PATIENT
  Age: 21 Year
  Sex: Male

DRUGS (1)
  1. ALPROLIX [Suspect]
     Active Substance: EFTRENONACOG ALFA
     Indication: PROPHYLAXIS
     Dosage: APPROXIMATELY FOUR MONTHS DURATION
     Route: 065

REACTIONS (1)
  - Haemorrhage [Unknown]
